FAERS Safety Report 17852176 (Version 1)
Quarter: 2020Q2

REPORT INFORMATION
  Report Type: Spontaneous
  Country: ES (occurrence: ES)
  Receive Date: 20200602
  Receipt Date: 20200602
  Transmission Date: 20200714
  Serious: Yes (Death, Hospitalization)
  Sender: FDA-Public Use
  Company Number: ES-ROCHE-2612707

PATIENT
  Age: 70 Year
  Sex: Male

DRUGS (6)
  1. TOCILIZUMAB. [Suspect]
     Active Substance: TOCILIZUMAB
     Indication: CORONAVIRUS INFECTION
     Dosage: 600 MG
     Route: 042
     Dates: start: 20200327, end: 20200327
  2. TOCILIZUMAB. [Suspect]
     Active Substance: TOCILIZUMAB
     Indication: SEVERE ACUTE RESPIRATORY SYNDROME
  3. HYDROXYCHLOROQUINE [Suspect]
     Active Substance: HYDROXYCHLOROQUINE
     Indication: COVID-19 PNEUMONIA
     Dosage: 400 MG DIA
     Route: 048
     Dates: start: 20200326, end: 20200330
  4. HYDROXYCHLOROQUINE [Suspect]
     Active Substance: HYDROXYCHLOROQUINE
     Indication: PNEUMONIA
  5. AZITROMICINA [Suspect]
     Active Substance: AZITHROMYCIN DIHYDRATE
     Indication: COVID-19 PNEUMONIA
     Dosage: 500 MG DIA
     Route: 042
     Dates: start: 20200326, end: 20200330
  6. AZITROMICINA [Suspect]
     Active Substance: AZITHROMYCIN DIHYDRATE
     Indication: PNEUMONIA

REACTIONS (6)
  - Hypertension [Fatal]
  - Ventricular tachycardia [Fatal]
  - Atrial flutter [Fatal]
  - Bundle branch block right [Fatal]
  - Pneumonia escherichia [Fatal]
  - Hypofibrinogenaemia [Fatal]

NARRATIVE: CASE EVENT DATE: 20200401
